FAERS Safety Report 6133222-2 (Version None)
Quarter: 2009Q1

REPORT INFORMATION
  Report Type: 
  Country: None (occurrence: None)
  Receive Date: 20090325
  Receipt Date: 20090325
  Transmission Date: 20090719
  Serious: Yes (Other)
  Sender: FDA-Public Use
  Company Number: None

PATIENT
  Age: 49 Year
  Sex: Female
  Weight: 73.9363 kg

DRUGS (1)
  1. CHANTIX [Suspect]
     Indication: SMOKING CESSATION THERAPY
     Dosage: 1 TABLET TWICE A DAY PO
     Route: 048
     Dates: start: 20080101, end: 20090301

REACTIONS (3)
  - AMNESIA [None]
  - IRRITABILITY [None]
  - LOSS OF EMPLOYMENT [None]
